FAERS Safety Report 13395747 (Version 1)
Quarter: 2017Q2

REPORT INFORMATION
  Report Type: Spontaneous
  Country: US (occurrence: US)
  Receive Date: 20170402
  Receipt Date: 20170402
  Transmission Date: 20170830
  Serious: Yes (Other)
  Sender: FDA-Public Use
  Company Number: None

PATIENT
  Age: 27 Year
  Sex: Female
  Weight: 62.73 kg

DRUGS (5)
  1. SELENIUM [Concomitant]
     Active Substance: SELENIUM
  2. MULTIVITAMIN [Concomitant]
     Active Substance: VITAMINS
  3. LYSTEDA [Suspect]
     Active Substance: TRANEXAMIC ACID
     Indication: MENORRHAGIA
     Dosage: ?          QUANTITY:4 TABLET(S);?
     Route: 048
     Dates: start: 20170325, end: 20170326
  4. LORATADINE. [Concomitant]
     Active Substance: LORATADINE
  5. IRON [Concomitant]
     Active Substance: IRON

REACTIONS (1)
  - Amnesia [None]

NARRATIVE: CASE EVENT DATE: 20170325
